FAERS Safety Report 8859003 (Version 2)
Quarter: 2012Q4

REPORT INFORMATION
  Report Type: Spontaneous
  Country: US (occurrence: None)
  Receive Date: 20121022
  Receipt Date: 20121024
  Transmission Date: 20130627
  Serious: Yes (Death)
  Sender: FDA-Public Use
  Company Number: JPI-P-025703

PATIENT
  Age: 47 Year
  Sex: Female

DRUGS (2)
  1. XYREM [Suspect]
     Indication: NARCOLEPSY
     Dosage: (4.5 gm, 2 in 1 D)
     Route: 048
     Dates: start: 20090422
  2. HORMONES [Concomitant]

REACTIONS (4)
  - Muscle spasms [None]
  - Fluid retention [None]
  - Weight decreased [None]
  - Cervix carcinoma [None]
